FAERS Safety Report 6555589-3 (Version None)
Quarter: 2010Q1

REPORT INFORMATION
  Report Type: 
  Country: None (occurrence: None)
  Receive Date: 20100128
  Receipt Date: 20100126
  Transmission Date: 20100710
  Serious: Yes (Hospitalization)
  Sender: FDA-Public Use
  Company Number: US-BRISTOL-MYERS SQUIBB COMPANY-14853501

PATIENT
  Age: 49 Year
  Sex: Female

DRUGS (3)
  1. ABATACEPT [Suspect]
     Indication: RHEUMATOID ARTHRITIS
     Dates: start: 20061106
  2. METHOTREXATE [Concomitant]
     Dates: start: 20090130
  3. FOLIC ACID [Concomitant]
     Dosage: ALSO GIVEN ON 05MAY1998
     Dates: start: 19980308

REACTIONS (3)
  - ASTHMA [None]
  - H1N1 INFLUENZA [None]
  - PNEUMONIA [None]
